FAERS Safety Report 5507532-3 (Version None)
Quarter: 2007Q4

REPORT INFORMATION
  Report Type: 
  Country: None (occurrence: None)
  Receive Date: 20071102
  Receipt Date: 20071022
  Transmission Date: 20080405
  Serious: Yes (Hospitalization, Other)
  Sender: FDA-Public Use
  Company Number: L07-JPN-05603-01

PATIENT
  Age: 24 Year
  Sex: Male

DRUGS (5)
  1. CARBAMAZEPINE [Suspect]
     Indication: EPILEPSY
     Dosage: 600 MG
  2. CARBAMAZEPINE [Suspect]
     Indication: EPILEPSY
     Dosage: 400 MG
  3. ZONISAMIDE [Suspect]
     Indication: EPILEPSY
     Dosage: 300 MG
  4. ZONISAMIDE [Suspect]
     Indication: EPILEPSY
     Dosage: 300 MG
  5. ZONISAMIDE [Suspect]
     Indication: EPILEPSY
     Dosage: 160 MG

REACTIONS (17)
  - ABASIA [None]
  - AGGRESSION [None]
  - AGITATION [None]
  - ASPARTATE AMINOTRANSFERASE INCREASED [None]
  - BLOOD CREATINE PHOSPHOKINASE INCREASED [None]
  - BLOOD PRESSURE FLUCTUATION [None]
  - DRUG INTERACTION [None]
  - DYSPHAGIA [None]
  - GRAND MAL CONVULSION [None]
  - HEART RATE IRREGULAR [None]
  - HYPERHIDROSIS [None]
  - INCONTINENCE [None]
  - MUSCLE RIGIDITY [None]
  - NEUROLEPTIC MALIGNANT SYNDROME [None]
  - SALIVARY HYPERSECRETION [None]
  - SOMNOLENCE [None]
  - TORTICOLLIS [None]
